FAERS Safety Report 9104996 (Version 3)
Quarter: 2013Q2

REPORT INFORMATION
  Report Type: Spontaneous
  Country: HU (occurrence: HU)
  Receive Date: 20130219
  Receipt Date: 20130529
  Transmission Date: 20140414
  Serious: Yes (Death, Hospitalization, Other)
  Sender: FDA-Public Use
  Company Number: HU-AMGEN-HUNSP2013010868

PATIENT
  Age: 67 Year
  Sex: Female
  Weight: 45 kg

DRUGS (7)
  1. ENBREL [Suspect]
     Indication: RHEUMATOID ARTHRITIS
     Dosage: 50 MG, WEEKLY
     Route: 058
     Dates: start: 20100201, end: 201301
  2. ERYTHROPOIETIN [Concomitant]
     Dosage: UNK
  3. SYNCUMAR [Concomitant]
     Dosage: UNK
  4. VERAPAMIL [Concomitant]
     Dosage: UNK
  5. KALIUM                             /00031402/ [Concomitant]
     Dosage: UNK
  6. FUROSEMIDE [Concomitant]
     Dosage: UNK
  7. ANTIBIOTICS [Concomitant]
     Dosage: UNK

REACTIONS (3)
  - Death [Fatal]
  - Cough [Recovering/Resolving]
  - Pneumonia [Recovering/Resolving]
